FAERS Safety Report 16269765 (Version 1)
Quarter: 2019Q2

REPORT INFORMATION
  Report Type: Spontaneous
  Country: US (occurrence: US)
  Receive Date: 20190502
  Receipt Date: 20190502
  Transmission Date: 20190711
  Serious: Yes (Hospitalization)
  Sender: FDA-Public Use
  Company Number: None

PATIENT
  Sex: Male

DRUGS (5)
  1. ATORVASTATIN 10 MG TABLETS [Concomitant]
     Active Substance: ATORVASTATIN
     Dates: start: 20190225
  2. ZYTIGA [Suspect]
     Active Substance: ABIRATERONE ACETATE
     Indication: PROSTATE CANCER
     Route: 048
  3. LISINOPRIL 2.5 MG TABLETS [Concomitant]
     Dates: start: 20181126
  4. ASPIRIN 81MG TABLETS [Concomitant]
     Dates: start: 20190429
  5. PREDNISONE 5 MG TABLETS [Concomitant]
     Dates: start: 20190401

REACTIONS (2)
  - Gait inability [None]
  - Influenza [None]
